FAERS Safety Report 21555548 (Version 2)
Quarter: 2023Q1

REPORT INFORMATION
  Report Type: Spontaneous
  Country: AU (occurrence: AU)
  Receive Date: 20221104
  Receipt Date: 20230315
  Transmission Date: 20230417
  Serious: Yes (Other)
  Sender: FDA-Public Use
  Company Number: AU-EXELTIS PHARMACEUTICAL HOLDING, S.L.-2210AU04496

PATIENT
  Age: 48 Year
  Sex: Female

DRUGS (3)
  1. DROSPIRENONE [Suspect]
     Active Substance: DROSPIRENONE
     Indication: Contraception
     Dosage: 4 MILLIGRAM, QD
     Dates: start: 20220202, end: 20220727
  2. NIZATIDINE [Concomitant]
     Active Substance: NIZATIDINE
     Indication: Product used for unknown indication
  3. PANTOPRAZOLE [Concomitant]
     Active Substance: PANTOPRAZOLE
     Indication: Product used for unknown indication

REACTIONS (1)
  - Hepatitis [Not Recovered/Not Resolved]

NARRATIVE: CASE EVENT DATE: 20220725
